FAERS Safety Report 6413475-3 (Version None)
Quarter: 2009Q4

REPORT INFORMATION
  Report Type: 
  Country: None (occurrence: None)
  Receive Date: 20091020
  Receipt Date: 20091016
  Transmission Date: 20100525
  Serious: Yes (Death, Disabling)
  Sender: FDA-Public Use
  Company Number: 2009-199573-NL

PATIENT
  Age: 52 Year
  Sex: Male
  Weight: 115 kg

DRUGS (5)
  1. MUSCULAX (VECURONIUM BROMIDE) (VECURONIUM BROMIDE) [Suspect]
     Indication: MUSCLE RELAXANT THERAPY
     Dosage: 50 MG; QD; IV
     Route: 042
     Dates: start: 20080123, end: 20080125
  2. MEROPENEM [Concomitant]
  3. ERYTHROMYCIN [Concomitant]
  4. LACTOBIONATE [Concomitant]
  5. PREDNISOLONE [Concomitant]

REACTIONS (12)
  - CARDIO-RESPIRATORY ARREST [None]
  - DEHYDRATION [None]
  - DIALYSIS [None]
  - DILATATION VENTRICULAR [None]
  - PNEUMOCOCCAL INFECTION [None]
  - PULMONARY EMBOLISM [None]
  - RENAL FAILURE [None]
  - RESPIRATORY FAILURE [None]
  - RHABDOMYOLYSIS [None]
  - RIGHT ATRIAL DILATATION [None]
  - SHOCK [None]
  - TRICUSPID VALVE DISEASE [None]
